FAERS Safety Report 6767947-2 (Version None)
Quarter: 2010Q2

REPORT INFORMATION
  Report Type: 
  Country: None (occurrence: None)
  Receive Date: 20100610
  Receipt Date: 20100601
  Transmission Date: 20101027
  Serious: Yes (Life-Threatening, Hospitalization)
  Sender: FDA-Public Use
  Company Number: 20097428

PATIENT
  Age: 61 Year
  Sex: Male
  Weight: 76.8 kg

DRUGS (3)
  1. BACLOFEN [Suspect]
     Indication: MUSCLE SPASTICITY
     Dosage: 30-24 MCG, DAILY, INTRATHECAL
     Route: 037
     Dates: start: 20090512
  2. NORVASC [Concomitant]
  3. RILUTEK [Concomitant]

REACTIONS (7)
  - DRUG WITHDRAWAL SYNDROME [None]
  - GENERALISED ERYTHEMA [None]
  - MUSCLE SPASMS [None]
  - PYELONEPHRITIS [None]
  - RESPIRATORY DISTRESS [None]
  - SEPTIC SHOCK [None]
  - URINARY TRACT INFECTION BACTERIAL [None]
